FAERS Safety Report 9503328 (Version 6)
Quarter: 2013Q4

REPORT INFORMATION
  Report Type: Spontaneous
  Country: RU (occurrence: RU)
  Receive Date: 20130906
  Receipt Date: 20131122
  Transmission Date: 20140711
  Serious: Yes (Other)
  Sender: FDA-Public Use
  Company Number: RU-PFIZER INC-2013251559

PATIENT
  Age: 62 Year
  Sex: Female

DRUGS (3)
  1. XALATAN [Suspect]
     Indication: OPEN ANGLE GLAUCOMA
     Dosage: 1 DROP INTO RIGHT EYE, 1X/DAY
     Route: 047
     Dates: start: 2011
  2. XALATAN [Suspect]
     Dosage: 1 DROP INTO RIGHT EYE, 1X/DAY
     Route: 047
     Dates: start: 20130822, end: 20130823
  3. TIMOLOL [Concomitant]
     Indication: OPEN ANGLE GLAUCOMA
     Dosage: 1 DROP INTO RIGHT EYE, 2X/DAY
     Route: 047
     Dates: start: 2011

REACTIONS (4)
  - Suspected counterfeit product [Not Recovered/Not Resolved]
  - Product quality issue [Not Recovered/Not Resolved]
  - Eye burns [Recovered/Resolved]
  - Visual acuity reduced [Not Recovered/Not Resolved]
